FAERS Safety Report 4995972-0 (Version None)
Quarter: 2006Q2

REPORT INFORMATION
  Report Type: 
  Country: None (occurrence: None)
  Receive Date: 20060508
  Receipt Date: 20060411
  Transmission Date: 20061013
  Serious: Yes (Life-Threatening, Hospitalization)
  Sender: FDA-Public Use
  Company Number: CA-MERCK-0604CAN00035

PATIENT
  Age: 43 Year
  Sex: Female
  Weight: 69 kg

DRUGS (4)
  1. MAXALT-MLT [Suspect]
     Indication: MIGRAINE
     Route: 048
     Dates: start: 20060330, end: 20060405
  2. CYPROTERONE ACETATE AND ETHINYL ESTRADIOL [Concomitant]
     Indication: CONTRACEPTION
     Route: 065
     Dates: end: 20060409
  3. FLUTICASONE PROPIONATE [Concomitant]
     Indication: RHINITIS ALLERGIC
     Route: 055
     Dates: start: 20040101
  4. IBUPROFEN [Concomitant]
     Route: 065

REACTIONS (3)
  - CAROTID ARTERY DISEASE [None]
  - CAROTID ARTERY DISSECTION [None]
  - CEREBRAL INFARCTION [None]
